FAERS Safety Report 5155923-5 (Version None)
Quarter: 2006Q4

REPORT INFORMATION
  Report Type: 
  Country: None (occurrence: None)
  Receive Date: 20061122
  Receipt Date: 20061116
  Transmission Date: 20070319
  Serious: Yes (Other)
  Sender: FDA-Public Use
  Company Number: GB-ABBOTT-06P-167-0350602-00

PATIENT
  Age: 31 Year
  Sex: Female

DRUGS (7)
  1. NORVIR [Suspect]
     Indication: SYSTEMIC ANTIVIRAL TREATMENT
  2. DIDANOSINE [Suspect]
     Indication: SYSTEMIC ANTIVIRAL TREATMENT
     Dates: start: 20040901
  3. FUZEON [Suspect]
     Indication: SYSTEMIC ANTIVIRAL TREATMENT
     Route: 058
  4. REYATAZ [Suspect]
     Indication: SYSTEMIC ANTIVIRAL TREATMENT
  5. LAMIVUDINE [Suspect]
     Indication: SYSTEMIC ANTIVIRAL TREATMENT
  6. VALGANCICLOVIR HCL [Concomitant]
     Indication: DRUG USE FOR UNKNOWN INDICATION
  7. COTRIM D.S. [Concomitant]
     Indication: DRUG USE FOR UNKNOWN INDICATION

REACTIONS (1)
  - ABORTION SPONTANEOUS [None]
